FAERS Safety Report 8309442-5 (Version None)
Quarter: 2012Q2

REPORT INFORMATION
  Report Type: 
  Country: None (occurrence: None)
  Receive Date: 20120424
  Receipt Date: 20120424
  Transmission Date: 20120825
  Serious: Yes (Hospitalization)
  Sender: FDA-Public Use
  Company Number: None

PATIENT
  Age: 31 Year
  Sex: Female
  Weight: 73.0291 kg

DRUGS (2)
  1. DULOXETINE HYDROCHLORIDE [Suspect]
     Indication: ALCOHOLISM
     Dosage: 40MG, 20MG 2X/DAY, ORAL
     Route: 048
     Dates: start: 20120112, end: 20120330
  2. PREGABALIN [Suspect]
     Indication: ALCOHOLISM
     Dosage: 30MG, 150MG,2X/DAY,ORAL
     Route: 048
     Dates: start: 20120112, end: 20120330

REACTIONS (1)
  - INFECTION PARASITIC [None]
